FAERS Safety Report 23828183 (Version 2)
Quarter: 2024Q2

REPORT INFORMATION
  Report Type: Spontaneous
  Country: MX (occurrence: None)
  Receive Date: 20240508
  Receipt Date: 20240608
  Transmission Date: 20240716
  Serious: Yes (Disabling, Other)
  Sender: FDA-Public Use
  Company Number: MX-ROCHE-3530328

PATIENT
  Age: 90 Year
  Sex: Female
  Weight: 70 kg

DRUGS (3)
  1. VABYSMO [Suspect]
     Active Substance: FARICIMAB\FARICIMAB-SVOA
     Indication: Neovascular age-related macular degeneration
     Dosage: LEFT INJECTION :12/JUN/2023 AND RIGHT EYE: 10/JAN/2024?DATE OF LAST FARICIMAB INJECTION: 10/JAN/2024
     Route: 050
     Dates: start: 202403
  2. VABYSMO [Suspect]
     Active Substance: FARICIMAB\FARICIMAB-SVOA
     Indication: Choroidal neovascularisation
  3. EYLEA [Concomitant]
     Active Substance: AFLIBERCEPT
     Dosage: MILD ANTERIOR SEGMENT INTRAOCULAR INFLAMMATION (IOI)

REACTIONS (4)
  - Retinal vascular occlusion [Recovered/Resolved]
  - Diabetic retinopathy [Unknown]
  - Eye inflammation [Recovered/Resolved with Sequelae]
  - Vitreous floaters [Recovered/Resolved]

NARRATIVE: CASE EVENT DATE: 20240301
